FAERS Safety Report 6196002-8 (Version None)
Quarter: 2009Q2

REPORT INFORMATION
  Report Type: 
  Country: None (occurrence: None)
  Receive Date: 20090520
  Receipt Date: 20061005
  Transmission Date: 20091009
  Serious: Yes (Hospitalization)
  Sender: FDA-Public Use
  Company Number: NL-ROCHE-502841

PATIENT
  Sex: Female

DRUGS (2)
  1. CAPECITABINE [Suspect]
     Indication: COLORECTAL CANCER
     Dosage: FROM DAYS ONE TO FOURTEEN OF A THREE WEEK CYCLE.
     Route: 048
     Dates: start: 20040721, end: 20040804
  2. CAPECITABINE [Suspect]
     Dosage: GIVEN TWICE DAILY FOR DAY1 TO DAY 14 PER THREE WEEK CYCLE
     Route: 048
     Dates: start: 20040822, end: 20040823

REACTIONS (8)
  - COLON CANCER [None]
  - HEPATIC FUNCTION ABNORMAL [None]
  - JAUNDICE CHOLESTATIC [None]
  - METASTASES TO LYMPH NODES [None]
  - NAUSEA [None]
  - NEOPLASM PROGRESSION [None]
  - PROCEDURAL COMPLICATION [None]
  - VOMITING [None]
